FAERS Safety Report 6336865-6 (Version None)
Quarter: 2009Q3

REPORT INFORMATION
  Report Type: 
  Country: None (occurrence: None)
  Receive Date: 20090901
  Receipt Date: 20090828
  Transmission Date: 20100115
  Serious: No
  Sender: FDA-Public Use
  Company Number: US-B.I. PHARMACEUTICALS,INC./RIDGEFIELD-2009-BP-10166BP

PATIENT
  Age: 87 Year
  Sex: Male

DRUGS (6)
  1. FLOMAX [Suspect]
     Indication: BENIGN PROSTATIC HYPERPLASIA
     Dosage: 0.4 MG
     Route: 048
     Dates: start: 20060101
  2. THYROID EXTRACT [Concomitant]
     Indication: HYPERTHYROIDISM
  3. PEPCID [Concomitant]
     Indication: HYPERCHLORHYDRIA
  4. AVODART [Concomitant]
     Indication: BENIGN PROSTATIC HYPERPLASIA
  5. LOVASTATIN [Concomitant]
     Indication: THROMBOSIS PROPHYLAXIS
  6. HYDROCO [Concomitant]
     Indication: THROMBOSIS PROPHYLAXIS

REACTIONS (1)
  - DYSURIA [None]
